FAERS Safety Report 7672696-2 (Version None)
Quarter: 2011Q3

REPORT INFORMATION
  Report Type: 
  Country: None (occurrence: None)
  Receive Date: 20110809
  Receipt Date: 20110805
  Transmission Date: 20111222
  Serious: Yes (Death, Other)
  Sender: FDA-Public Use
  Company Number: PHHY2011AR71038

PATIENT
  Age: 73 Year
  Sex: Female

DRUGS (2)
  1. VANCOMYCIN [Suspect]
     Indication: STAPHYLOCOCCAL BACTERAEMIA
     Dosage: 15 MG/KG, Q12H
  2. SULFAMETHOXAZOLE AND TRIMETHOPRIM [Concomitant]
     Dosage: 15 MG/KG, DAILY

REACTIONS (9)
  - BRAIN ABSCESS [None]
  - DRUG RESISTANCE [None]
  - CARDIAC VALVE VEGETATION [None]
  - MENTAL STATUS CHANGES [None]
  - STAPHYLOCOCCAL BACTERAEMIA [None]
  - NEUROLOGICAL SYMPTOM [None]
  - PYREXIA [None]
  - ENDOCARDITIS [None]
  - HYPOTENSION [None]
